FAERS Safety Report 6461875-8 (Version None)
Quarter: 2009Q4

REPORT INFORMATION
  Report Type: 
  Country: None (occurrence: None)
  Receive Date: 20091130
  Receipt Date: 20091119
  Transmission Date: 20100525
  Serious: Yes (Disabling)
  Sender: FDA-Public Use
  Company Number: PHHY2009IT50801

PATIENT
  Sex: Female

DRUGS (1)
  1. ZOMETA [Suspect]
     Indication: METASTASES TO BONE
     Dosage: 4 MG CYCLIC
     Dates: start: 20070214, end: 20090120

REACTIONS (3)
  - BONE DISORDER [None]
  - JAW OPERATION [None]
  - OSTEONECROSIS [None]
